FAERS Safety Report 19891491 (Version 3)
Quarter: 2021Q4

REPORT INFORMATION
  Report Type: Report from Study
  Country: CN (occurrence: CN)
  Receive Date: 20210928
  Receipt Date: 20211117
  Transmission Date: 20220303
  Serious: Yes (Hospitalization)
  Sender: FDA-Public Use
  Company Number: CN-MERCK HEALTHCARE KGAA-9266902

PATIENT
  Age: 56 Year
  Sex: Male
  Weight: 47 kg

DRUGS (12)
  1. CETUXIMAB [Suspect]
     Active Substance: CETUXIMAB
     Indication: Colorectal cancer metastatic
     Dosage: 636 MG, UNKNOWN
     Route: 041
     Dates: start: 20210701
  2. CETUXIMAB [Suspect]
     Active Substance: CETUXIMAB
     Dosage: 398 MG, UNKNOWN
     Route: 041
     Dates: start: 20210902, end: 20210902
  3. CETUXIMAB [Suspect]
     Active Substance: CETUXIMAB
     Dosage: UNK UNK, UNKNOWN
     Route: 041
     Dates: start: 20211028
  4. OXALIPLATIN [Concomitant]
     Active Substance: OXALIPLATIN
     Indication: Colorectal cancer metastatic
     Dosage: 135 MG, DAILY
     Route: 041
     Dates: start: 20210701
  5. OXALIPLATIN [Concomitant]
     Active Substance: OXALIPLATIN
     Dosage: 135 MG, DAILY
     Route: 041
     Dates: start: 20210826, end: 20210826
  6. OXALIPLATIN [Concomitant]
     Active Substance: OXALIPLATIN
     Dosage: UNK UNK, UNKNOWN
     Route: 041
     Dates: start: 20211028
  7. LEUCOVORIN CALCIUM [Concomitant]
     Active Substance: LEUCOVORIN CALCIUM
     Indication: Colorectal cancer metastatic
     Dosage: 0.636 G, DAILY
     Route: 041
     Dates: start: 20210701
  8. LEUCOVORIN CALCIUM [Concomitant]
     Active Substance: LEUCOVORIN CALCIUM
     Dosage: 0.636 MG, DAILY
     Route: 041
     Dates: start: 20210826, end: 20210826
  9. LEUCOVORIN CALCIUM [Concomitant]
     Active Substance: LEUCOVORIN CALCIUM
     Dosage: UNK UNK, UNKNOWN
     Route: 041
     Dates: start: 20211028
  10. FLUOROURACIL [Concomitant]
     Active Substance: FLUOROURACIL
     Indication: Colorectal cancer metastatic
     Dosage: LYOPHILIZED POWDER /0.25G FOR 48 HOURS0.636G INTRAVENOUS INJECTION+3.816G/ PUMPING 48H
     Route: 042
     Dates: start: 20210701
  11. FLUOROURACIL [Concomitant]
     Active Substance: FLUOROURACIL
     Dosage: LYOPHILIZED POWDER /0.25G FOR 48 HOURS0.636G INTRAVENOUS INJECTION+3.816G/ PUMPING 48H
     Route: 042
     Dates: start: 20210826, end: 20210826
  12. FLUOROURACIL [Concomitant]
     Active Substance: FLUOROURACIL
     Dosage: LYOPHILIZED POWDER /0.25G
     Route: 042
     Dates: start: 20211028

REACTIONS (1)
  - Intestinal obstruction [Recovered/Resolved]

NARRATIVE: CASE EVENT DATE: 20210909
